FAERS Safety Report 25309341 (Version 1)
Quarter: 2025Q2

REPORT INFORMATION
  Report Type: Spontaneous
  Country: US (occurrence: US)
  Receive Date: 20250513
  Receipt Date: 20250513
  Transmission Date: 20250716
  Serious: No
  Sender: SANDOZ
  Company Number: US-SANDOZ-SDZ2025US030760

PATIENT
  Age: 77 Year
  Sex: Female

DRUGS (1)
  1. RECLAST [Suspect]
     Active Substance: ZOLEDRONIC ACID
     Indication: Product used for unknown indication
     Route: 065
     Dates: start: 202405

REACTIONS (4)
  - Skin disorder [Not Recovered/Not Resolved]
  - Rash [Unknown]
  - Pain [Recovered/Resolved]
  - Headache [Recovered/Resolved]
